FAERS Safety Report 22931849 (Version 5)
Quarter: 2024Q4

REPORT INFORMATION
  Report Type: Report from Study
  Country: BE (occurrence: BE)
  Receive Date: 20230911
  Receipt Date: 20241216
  Transmission Date: 20250115
  Serious: Yes (Hospitalization)
  Sender: ABBVIE
  Company Number: BE-ABBVIE-5400772

PATIENT
  Age: 38 Year
  Sex: Female
  Weight: 64.6 kg

DRUGS (14)
  1. UPADACITINIB [Suspect]
     Active Substance: UPADACITINIB
     Indication: Axial spondyloarthritis
     Route: 048
     Dates: start: 20220711
  2. IBUPROFEN [Concomitant]
     Active Substance: IBUPROFEN
     Indication: Axial spondyloarthritis
     Dosage: PATTERN OF USE CONTINUOUS
     Route: 048
     Dates: start: 19940801, end: 20000814
  3. IBUPROFEN [Concomitant]
     Active Substance: IBUPROFEN
     Indication: Axial spondyloarthritis
     Dosage: TIME INTERVAL: AS NECESSARY
     Route: 048
     Dates: start: 20000814, end: 20181217
  4. IBUPROFEN [Concomitant]
     Active Substance: IBUPROFEN
     Indication: Axial spondyloarthritis
     Dosage: TIME INTERVAL: AS NECESSARY
     Route: 048
     Dates: start: 20181217
  5. ACETAMINOPHEN [Concomitant]
     Active Substance: ACETAMINOPHEN
     Indication: Axial spondyloarthritis
     Dosage: TIME INTERVAL: AS NECESSARY
     Route: 048
     Dates: start: 20000814
  6. MEDROL [Concomitant]
     Active Substance: METHYLPREDNISOLONE
     Indication: Axial spondyloarthritis
     Dosage: FREQUENCY INTERMITTENT
     Route: 048
     Dates: start: 19940819
  7. METHOTREXATE [Concomitant]
     Active Substance: METHOTREXATE
     Indication: Axial spondyloarthritis
     Route: 048
     Dates: start: 20080520, end: 20170612
  8. METHOTREXATE [Concomitant]
     Active Substance: METHOTREXATE
     Indication: Axial spondyloarthritis
     Route: 048
     Dates: start: 20170612, end: 20181217
  9. METHOTREXATE [Concomitant]
     Active Substance: METHOTREXATE
     Indication: Axial spondyloarthritis
     Route: 048
     Dates: start: 20181217, end: 20190510
  10. METHOTREXATE [Concomitant]
     Active Substance: METHOTREXATE
     Indication: Axial spondyloarthritis
     Route: 048
     Dates: start: 20190510, end: 20210712
  11. METHOTREXATE [Concomitant]
     Active Substance: METHOTREXATE
     Indication: Axial spondyloarthritis
     Route: 048
     Dates: start: 20210712
  12. FOLIC ACID [Concomitant]
     Active Substance: FOLIC ACID
     Indication: Axial spondyloarthritis
     Route: 048
     Dates: start: 20030124
  13. PANTOMED [Concomitant]
     Indication: Gastrointestinal disorder prophylaxis
     Route: 048
     Dates: start: 20181117
  14. DIPROSONE [Concomitant]
     Active Substance: BETAMETHASONE DIPROPIONATE
     Indication: Psoriasis
     Dosage: FREQUENCY  INTERMITTENT
     Route: 061
     Dates: start: 20220720

REACTIONS (1)
  - Pharyngeal abscess [Recovered/Resolved]

NARRATIVE: CASE EVENT DATE: 20230621
